FAERS Safety Report 14087780 (Version 1)
Quarter: 2017Q4

REPORT INFORMATION
  Report Type: Spontaneous
  Country: US (occurrence: US)
  Receive Date: 20171013
  Receipt Date: 20171013
  Transmission Date: 20180321
  Serious: No
  Sender: FDA-Public Use
  Company Number: US-ASTRAZENECA-2017SF03934

PATIENT
  Sex: Female
  Weight: 83.9 kg

DRUGS (2)
  1. FASLODEX [Suspect]
     Active Substance: FULVESTRANT
     Indication: BREAST CANCER STAGE IV
     Dosage: MONTHLY
     Route: 030
     Dates: start: 2014
  2. XGEVA [Concomitant]
     Active Substance: DENOSUMAB
     Indication: BONE DISORDER
     Dosage: EVERY 28 DAYS WITH FASLODEX

REACTIONS (3)
  - Injection site mass [Not Recovered/Not Resolved]
  - Product use issue [Unknown]
  - Off label use [Unknown]
